FAERS Safety Report 9532292 (Version 1)
Quarter: 2013Q3

REPORT INFORMATION
  Report Type: Spontaneous
  Country: CA (occurrence: CA)
  Receive Date: 20130918
  Receipt Date: 20130918
  Transmission Date: 20140515
  Serious: Yes (Other)
  Sender: FDA-Public Use
  Company Number: CA-ASTRAZENECA-2013SE68714

PATIENT
  Sex: Female

DRUGS (8)
  1. FASLODEX [Suspect]
     Route: 030
  2. XELODA [Suspect]
     Route: 065
  3. CARBOPLATIN [Suspect]
     Route: 042
  4. EXEMESTANE [Suspect]
     Route: 065
  5. DOCETAXEL [Suspect]
     Route: 042
  6. DOXORUBICIN HYDROCHLORIDE [Suspect]
     Route: 065
  7. GEMCITABINE [Suspect]
     Route: 042
  8. FEMARA [Suspect]
     Route: 048

REACTIONS (3)
  - Breast cancer [Unknown]
  - Malignant neoplasm progression [Unknown]
  - Drug ineffective [Unknown]
